FAERS Safety Report 4906044-5 (Version None)
Quarter: 2006Q1

REPORT INFORMATION
  Report Type: 
  Country: None (occurrence: None)
  Receive Date: 20060207
  Receipt Date: 20060207
  Transmission Date: 20060701
  Serious: Yes (Disabling)
  Sender: FDA-Public Use
  Company Number: None

PATIENT
  Age: 61 Year
  Sex: Female
  Weight: 68.0396 kg

DRUGS (3)
  1. LIPITOR [Suspect]
     Indication: BLOOD CHOLESTEROL INCREASED
     Dosage: 40 MG 1 X DAY PO
     Route: 048
     Dates: start: 20010105, end: 20051007
  2. LIPITOR [Suspect]
     Indication: LOW DENSITY LIPOPROTEIN INCREASED
     Dosage: 40 MG 1 X DAY PO
     Route: 048
     Dates: start: 20010105, end: 20051007
  3. ZETIA [Suspect]
     Indication: BLOOD CHOLESTEROL INCREASED
     Dosage: 10 MG 1X DAY PO
     Route: 048
     Dates: start: 20030105, end: 20031007

REACTIONS (1)
  - BLOOD CREATINE PHOSPHOKINASE INCREASED [None]
